FAERS Safety Report 15241704 (Version 1)
Quarter: 2018Q3

REPORT INFORMATION
  Report Type: Spontaneous
  Country: US (occurrence: US)
  Receive Date: 20180712
  Receipt Date: 20180712
  Transmission Date: 20181010
  Serious: Yes (Hospitalization)
  Sender: FDA-Public Use
  Company Number: None

PATIENT
  Age: 61 Year
  Sex: Female
  Weight: 113.85 kg

DRUGS (9)
  1. POTASSIUM CITRATE 10 MEQ [Concomitant]
  2. VENLAFAXINE XR 150 MG [Concomitant]
  3. DUONEB [Concomitant]
     Active Substance: ALBUTEROL SULFATE\IPRATROPIUM BROMIDE
  4. MYCOPHENOLATE MOFETIL 250 MG CAP [Concomitant]
  5. DIOVAN [Concomitant]
     Active Substance: VALSARTAN
  6. HYDROXYCHLOROQUINE 200 MG TAB [Concomitant]
  7. IBANDRONATE 150 MG TAB [Concomitant]
  8. PREGABALIN 100 MG [Concomitant]
     Active Substance: PREGABALIN
  9. METFORMIN [Suspect]
     Active Substance: METFORMIN HYDROCHLORIDE
     Indication: TYPE 2 DIABETES MELLITUS
     Route: 048
     Dates: start: 20130219, end: 20180628

REACTIONS (18)
  - Nausea [None]
  - Ischaemic hepatitis [None]
  - Toxicity to various agents [None]
  - Fall [None]
  - Asthenia [None]
  - Lactic acidosis [None]
  - Platelet count decreased [None]
  - Hepatic mass [None]
  - Acute kidney injury [None]
  - Urinary tract infection [None]
  - Haemoglobin decreased [None]
  - Vomiting [None]
  - Dialysis [None]
  - Traumatic liver injury [None]
  - Metabolic acidosis [None]
  - Respiratory failure [None]
  - Blood glucose increased [None]
  - Peritoneal haemorrhage [None]

NARRATIVE: CASE EVENT DATE: 20180612
